FAERS Safety Report 16975412 (Version 1)
Quarter: 2019Q4

REPORT INFORMATION
  Report Type: Spontaneous
  Country: US (occurrence: US)
  Receive Date: 20191029
  Receipt Date: 20191029
  Transmission Date: 20200122
  Serious: Yes (Hospitalization)
  Sender: FDA-Public Use
  Company Number: None

PATIENT
  Age: 46 Year
  Sex: Male

DRUGS (16)
  1. IPRATROPIUM/SOL ALBUTER [Concomitant]
  2. AMOX/K CLAV [Concomitant]
     Active Substance: AMOXICILLIN\CLAVULANATE POTASSIUM
  3. METRONIDAZOLE. [Concomitant]
     Active Substance: METRONIDAZOLE
  4. SYMBICORT [Concomitant]
     Active Substance: BUDESONIDE\FORMOTEROL FUMARATE DIHYDRATE
  5. PROAIR HFA [Concomitant]
     Active Substance: ALBUTEROL SULFATE
  6. CEFDINIR. [Concomitant]
     Active Substance: CEFDINIR
  7. IBUPROFEN. [Concomitant]
     Active Substance: IBUPROFEN
  8. AMOXICILLIN. [Concomitant]
     Active Substance: AMOXICILLIN
  9. TRESIBA FLEX [Concomitant]
  10. GLIPIZIDE. [Concomitant]
     Active Substance: GLIPIZIDE
  11. NYSTATIN. [Concomitant]
     Active Substance: NYSTATIN
  12. TACROLIMUS. [Suspect]
     Active Substance: TACROLIMUS
     Indication: RENAL TRANSPLANT
     Route: 048
     Dates: start: 20180126
  13. PREDNISONE. [Concomitant]
     Active Substance: PREDNISONE
  14. BENZONATATE. [Concomitant]
     Active Substance: BENZONATATE
  15. HYD POL/CPM [Concomitant]
  16. AZITHROMYCIN ANHYDROUS. [Concomitant]
     Active Substance: AZITHROMYCIN ANHYDROUS

REACTIONS (1)
  - Pneumonia [None]

NARRATIVE: CASE EVENT DATE: 20190918
